FAERS Safety Report 5228011-7 (Version None)
Quarter: 2007Q1

REPORT INFORMATION
  Report Type: 
  Country: None (occurrence: None)
  Receive Date: 20061205
  Receipt Date: 20060915
  Transmission Date: 20070707
  Serious: No
  Sender: FDA-Public Use
  Company Number: PHEH2006US07415

PATIENT
  Age: 77 Year
  Sex: Female

DRUGS (2)
  1. EXJADE [Suspect]
     Indication: HAEMOCHROMATOSIS
     Dosage: 2000 MG, QD, ORAL
     Route: 048
     Dates: start: 20060209, end: 20060617
  2. REVLIMID [Concomitant]

REACTIONS (3)
  - DIARRHOEA [None]
  - HYPOACUSIS [None]
  - STOMACH DISCOMFORT [None]
